FAERS Safety Report 9120648 (Version 1)
Quarter: 2013Q1

REPORT INFORMATION
  Report Type: Spontaneous
  Country: US (occurrence: US)
  Receive Date: 20130226
  Receipt Date: 20130226
  Transmission Date: 20140127
  Serious: Yes (Hospitalization)
  Sender: FDA-Public Use
  Company Number: US-UCBSA-078881

PATIENT
  Age: 68 Year
  Sex: Male

DRUGS (12)
  1. ISOSORBIDE MONONITRATE [Suspect]
     Dosage: UNKNOWN DOSE,
     Route: 048
  2. ASPIRIN [Suspect]
     Dosage: UNKNOWN DOSE
     Route: 048
  3. PREDNISONE [Suspect]
     Indication: PROSTATE CANCER
     Dosage: 5 MG
     Route: 048
  4. METHADONE HYDROCHLORIDE [Suspect]
     Dosage: UNKNOWN DOSE
     Route: 048
  5. OLMESARTAN MEDOXOMIL [Suspect]
     Dosage: UNKNOWN DOSE
     Route: 048
  6. ATORVASTATIN CALCIUM [Suspect]
     Route: 048
  7. NEBIVOLOL HYDROCHLORIDE [Suspect]
     Dosage: UNKNOWN DOSE
     Route: 048
  8. GLIBENCLAMIDE [Suspect]
     Dosage: UNKNOWN DOSE
     Route: 048
  9. NITROGLYCERINE [Suspect]
     Dosage: UNKNOWN DOSE
     Route: 060
  10. TAPENTADOL [Suspect]
     Dosage: TOTAL DAILY DOSE: 450 MG
     Route: 048
  11. SUNITINIB MALATE [Suspect]
     Indication: PROSTATE CANCER
     Dosage: DAILY DOSE: 37.5 MG
     Route: 048
     Dates: start: 20120402
  12. ABIRATERONE ACETATE [Suspect]
     Indication: PROSTATE CANCER
     Dosage: DAILY DOSE: 1000 MG
     Route: 048
     Dates: start: 20110603

REACTIONS (4)
  - Muscular weakness [Recovered/Resolved]
  - Chest pain [Unknown]
  - Mental status changes [Unknown]
  - Dyspnoea [Unknown]
